FAERS Safety Report 12181694 (Version 2)
Quarter: 2016Q2

REPORT INFORMATION
  Report Type: Report from Study
  Country: CA (occurrence: CA)
  Receive Date: 20160315
  Receipt Date: 20160411
  Transmission Date: 20160815
  Serious: Yes (Other)
  Sender: FDA-Public Use
  Company Number: CA-GILEAD-2016-0202796

PATIENT
  Age: 60 Year
  Sex: Male

DRUGS (4)
  1. IBAVYR [Concomitant]
     Active Substance: RIBAVIRIN
     Indication: CHRONIC HEPATITIS C
  2. INVOKANA [Concomitant]
     Active Substance: CANAGLIFLOZIN
  3. METFORMIN [Concomitant]
     Active Substance: METFORMIN HYDROCHLORIDE
  4. SOFOSBUVIR [Suspect]
     Active Substance: SOFOSBUVIR
     Indication: CHRONIC HEPATITIS C
     Dosage: 400 MG, UNK
     Route: 048

REACTIONS (10)
  - Abnormal dreams [Not Recovered/Not Resolved]
  - Fatigue [Recovered/Resolved]
  - Irritability [Not Recovered/Not Resolved]
  - Mood swings [Unknown]
  - Depression [Unknown]
  - Herpes zoster [Recovering/Resolving]
  - Lower respiratory tract infection [Not Recovered/Not Resolved]
  - Anger [Unknown]
  - Nausea [Unknown]
  - Headache [Unknown]
